FAERS Safety Report 7992903-6 (Version None)
Quarter: 2011Q4

REPORT INFORMATION
  Report Type: 
  Country: None (occurrence: None)
  Receive Date: 20111219
  Receipt Date: 20110624
  Transmission Date: 20120403
  Serious: No
  Sender: FDA-Public Use
  Company Number: US-ASTRAZENECA-2011SE38656

PATIENT
  Age: 83 Year
  Sex: Male

DRUGS (3)
  1. METFORMIN HCL [Concomitant]
  2. CRESTOR [Suspect]
     Route: 048
  3. KAPTORIL [Concomitant]

REACTIONS (5)
  - BLOOD GLUCOSE INCREASED [None]
  - WRONG DRUG ADMINISTERED [None]
  - DIZZINESS [None]
  - CONDITION AGGRAVATED [None]
  - DRUG DOSE OMISSION [None]
